FAERS Safety Report 5701400-X (Version None)
Quarter: 2008Q2

REPORT INFORMATION
  Report Type: 
  Country: None (occurrence: None)
  Receive Date: 20080407
  Receipt Date: 20080327
  Transmission Date: 20081010
  Serious: Yes (Life-Threatening)
  Sender: FDA-Public Use
  Company Number: GXKR2008GB03002

PATIENT
  Age: 66 Year
  Sex: Female
  Weight: 103 kg

DRUGS (12)
  1. CO-CODAMOL (NGX)(ACETAMINOPHEN (PARACETAMOL), CODEINE PHOSPHATE) UNKNO [Suspect]
     Dosage: QID,
  2. VERAPAMIL [Suspect]
     Dosage: 240 MG, QD, ORAL
     Route: 048
  3. ALLOPURINOL [Concomitant]
  4. ACETYLSALICYLIC ACID SRT [Concomitant]
  5. ATORVASTATIN CALCIUM [Concomitant]
  6. FUROSEMIDE [Concomitant]
  7. GAVISCON /OLD FORM/ (ALGINIC ACID, ALUMINIUM HYDROXIDE GEL, DRIED, MAG [Concomitant]
  8. LANTUS [Concomitant]
  9. LISINOPRIL [Concomitant]
  10. NOVORAPID (INSULIN ASPART) [Concomitant]
  11. OMEPRAZOLE [Concomitant]
  12. TOLTERODINE TARTRATE [Concomitant]

REACTIONS (2)
  - CONSTIPATION [None]
  - INTESTINAL ISCHAEMIA [None]
